FAERS Safety Report 4535259-3 (Version None)
Quarter: 2004Q4

REPORT INFORMATION
  Report Type: 
  Country: None (occurrence: None)
  Receive Date: 20041214
  Receipt Date: 20041102
  Transmission Date: 20050328
  Serious: No
  Sender: FDA-Public Use
  Company Number: 2004243480US

PATIENT
  Sex: Female
  Weight: 68 kg

DRUGS (5)
  1. BEXTRA [Suspect]
     Indication: ARTHRITIS
     Dosage: 10 MG, QD
     Dates: end: 20041001
  2. LOVASTATIN [Suspect]
     Indication: BLOOD CHOLESTEROL INCREASED
     Dosage: 10 MG, QD
     Dates: end: 20041001
  3. INDAPAMIDE [Concomitant]
  4. ACTONEL [Concomitant]
  5. VAGIFEM [Concomitant]

REACTIONS (2)
  - DYSKINESIA [None]
  - MYALGIA [None]
